FAERS Safety Report 9374677 (Version 2)
Quarter: 2013Q3

REPORT INFORMATION
  Report Type: Spontaneous
  Country: US (occurrence: US)
  Receive Date: 20130628
  Receipt Date: 20130729
  Transmission Date: 20140515
  Serious: Yes (Hospitalization)
  Sender: FDA-Public Use
  Company Number: US-BAYER-2013-079298

PATIENT
  Age: 21 Year
  Sex: Female
  Weight: 63 kg

DRUGS (3)
  1. OCELLA [Suspect]
     Dosage: 1 DF, QD
     Route: 048
     Dates: end: 20130401
  2. CLINDAMYCIN [Concomitant]
     Route: 061
  3. RETIN-A [Concomitant]
     Route: 061

REACTIONS (4)
  - Pulmonary embolism [None]
  - Dyspnoea [None]
  - Heart rate increased [None]
  - Oxygen saturation decreased [None]
